FAERS Safety Report 20986124 (Version 2)
Quarter: 2022Q4

REPORT INFORMATION
  Report Type: Report from Study
  Country: JP (occurrence: JP)
  Receive Date: 20220621
  Receipt Date: 20221031
  Transmission Date: 20230112
  Serious: Yes (Death)
  Sender: FDA-Public Use
  Company Number: JP-BAYER-2022A085855

PATIENT
  Age: 40 Year
  Sex: Female

DRUGS (10)
  1. VENTAVIS [Suspect]
     Active Substance: ILOPROST
     Indication: Pulmonary arterial hypertension
     Dosage: 2.5 UG, ONCE
     Route: 055
     Dates: start: 20190620, end: 20190620
  2. VENTAVIS [Suspect]
     Active Substance: ILOPROST
     Indication: Sjogren^s syndrome
     Dosage: 5.0 UG, 5ID
     Route: 055
     Dates: start: 20190620, end: 20190620
  3. VENTAVIS [Suspect]
     Active Substance: ILOPROST
     Indication: Systemic lupus erythematosus
     Dosage: 5.0 UG, 6ID
     Route: 055
     Dates: start: 20190621, end: 20190822
  4. MACITENTAN [Concomitant]
     Active Substance: MACITENTAN
     Indication: Pulmonary arterial hypertension
     Route: 048
  5. RIOCIGUAT [Concomitant]
     Active Substance: RIOCIGUAT
     Indication: Pulmonary arterial hypertension
     Route: 048
  6. SELEXIPAG [Concomitant]
     Active Substance: SELEXIPAG
     Indication: Pulmonary arterial hypertension
     Route: 048
  7. PREDNISOLONE [Concomitant]
     Active Substance: PREDNISOLONE
     Route: 048
  8. AZATHIOPRINE [Concomitant]
     Active Substance: AZATHIOPRINE
     Route: 048
  9. URSODIOL [Concomitant]
     Active Substance: URSODIOL
     Route: 048
  10. OXYGEN [Concomitant]
     Active Substance: OXYGEN
     Indication: Pulmonary arterial hypertension
     Dosage: UNK

REACTIONS (1)
  - Hepatic cirrhosis [Fatal]

NARRATIVE: CASE EVENT DATE: 20200116
